FAERS Safety Report 17147056 (Version 3)
Quarter: 2020Q1

REPORT INFORMATION
  Report Type: Spontaneous
  Country: US (occurrence: US)
  Receive Date: 20191212
  Receipt Date: 20200210
  Transmission Date: 20200409
  Serious: Yes (Death)
  Sender: FDA-Public Use
  Company Number: US-AKORN PHARMACEUTICALS-2019AKN02471

PATIENT
  Sex: Male
  Weight: 113.38 kg

DRUGS (1)
  1. MYORISAN [Suspect]
     Active Substance: ISOTRETINOIN
     Indication: ACNE CYSTIC
     Dosage: 20 MG, 2X/DAY
     Route: 048
     Dates: start: 20190930, end: 20191021

REACTIONS (2)
  - Pneumonia aspiration [Fatal]
  - Pneumonia [Fatal]

NARRATIVE: CASE EVENT DATE: 2019
